FAERS Safety Report 13358878 (Version 1)
Quarter: 2017Q1

REPORT INFORMATION
  Report Type: Spontaneous
  Country: JP (occurrence: JP)
  Receive Date: 20170322
  Receipt Date: 20170322
  Transmission Date: 20170429
  Serious: Yes (Death, Other)
  Sender: FDA-Public Use
  Company Number: JP-GLAXOSMITHKLINE-JP2016JPN151644

PATIENT
  Age: 84 Year
  Sex: Male

DRUGS (4)
  1. MUCOSOLVAN (AMBROXOL HYDROCHLORIDE) [Concomitant]
     Active Substance: AMBROXOL HYDROCHLORIDE
     Dosage: UNK
  2. SERETIDE [Suspect]
     Active Substance: FLUTICASONE PROPIONATE\SALMETEROL XINAFOATE
     Indication: ASTHMA
     Dosage: 250 ?G, BID
     Route: 055
     Dates: start: 201610
  3. MUCOFILIN [Concomitant]
     Dosage: UNK
  4. HOKUNALIN TAPE [Concomitant]
     Active Substance: TULOBUTEROL
     Dosage: UNK

REACTIONS (4)
  - Incorrect route of drug administration [Unknown]
  - Dyspnoea [Unknown]
  - Wrong technique in product usage process [Unknown]
  - Death [Fatal]

NARRATIVE: CASE EVENT DATE: 20161014
